FAERS Safety Report 7682646-0 (Version None)
Quarter: 2011Q3

REPORT INFORMATION
  Report Type: 
  Country: None (occurrence: None)
  Receive Date: 20110810
  Receipt Date: 20110727
  Transmission Date: 20111222
  Serious: Yes (Other)
  Sender: FDA-Public Use
  Company Number: 2011MA010758

PATIENT
  Age: 56 Year
  Sex: Female

DRUGS (6)
  1. LANSOPRAZOLE [Concomitant]
  2. LORATADINE [Concomitant]
  3. FORTISIP [Concomitant]
  4. MIRTAZAPINE [Suspect]
     Indication: DEPRESSION
     Dosage: 30 MG, QD, PO
     Route: 048
     Dates: start: 20080201, end: 20110701
  5. MIRTAZAPINE [Suspect]
     Indication: DEPRESSION
     Dosage: 30 MG, QD, ORAL
     Route: 048
     Dates: start: 20100201, end: 20110701
  6. DIAZEPAM [Concomitant]

REACTIONS (5)
  - WHITE BLOOD CELL COUNT DECREASED [None]
  - BLOOD DISORDER [None]
  - NEUTROPHIL COUNT DECREASED [None]
  - BASOPHIL COUNT DECREASED [None]
  - MONOCYTE COUNT DECREASED [None]
